FAERS Safety Report 18397691 (Version 1)
Quarter: 2020Q4

REPORT INFORMATION
  Report Type: Spontaneous
  Country: US (occurrence: US)
  Receive Date: 20201018
  Receipt Date: 20201018
  Transmission Date: 20210114
  Serious: Yes (Other)
  Sender: FDA-Public Use
  Company Number: None

PATIENT
  Age: 19 Year
  Sex: Female
  Weight: 69.75 kg

DRUGS (2)
  1. VITAMIN D [Concomitant]
     Active Substance: VITAMIN D NOS
  2. METRONIDAZOLE. [Suspect]
     Active Substance: METRONIDAZOLE
     Indication: BACTERIAL VAGINOSIS
     Dosage: ?          QUANTITY:2 TABLET(S);?
     Route: 048
     Dates: start: 20200816, end: 20200819

REACTIONS (7)
  - Middle insomnia [None]
  - Blepharospasm [None]
  - Skin burning sensation [None]
  - Gait disturbance [None]
  - Pain [None]
  - Neuralgia [None]
  - Paraesthesia [None]

NARRATIVE: CASE EVENT DATE: 20200816
